FAERS Safety Report 5123191-6 (Version None)
Quarter: 2006Q4

REPORT INFORMATION
  Report Type: 
  Country: None (occurrence: None)
  Receive Date: 20061005
  Receipt Date: 20060728
  Transmission Date: 20070319
  Serious: Yes (Other)
  Sender: FDA-Public Use
  Company Number: 2006094364

PATIENT
  Sex: 0

DRUGS (1)
  1. PREPIDIL [Suspect]
     Indication: LABOUR INDUCTION
     Dosage: 2.5 M L (2.5 ML, DAILY), OTHER
     Dates: start: 20060725, end: 20060726

REACTIONS (3)
  - CAESAREAN SECTION [None]
  - DRUG EXPOSURE DURING PREGNANCY [None]
  - FOETAL DISTRESS SYNDROME [None]
